FAERS Safety Report 16753451 (Version 2)
Quarter: 2019Q4

REPORT INFORMATION
  Report Type: Report from Study
  Country: US (occurrence: US)
  Receive Date: 20190829
  Receipt Date: 20191029
  Transmission Date: 20200122
  Serious: Yes (Other)
  Sender: FDA-Public Use
  Company Number: US-SA-2019SA230680

PATIENT
  Age: 35 Year
  Sex: Female

DRUGS (9)
  1. ALEMTUZUMAB [Suspect]
     Active Substance: ALEMTUZUMAB
     Indication: MULTIPLE SCLEROSIS
     Dosage: 12 MG, QD
     Route: 041
     Dates: start: 20181001, end: 20181005
  2. ALEMTUZUMAB [Suspect]
     Active Substance: ALEMTUZUMAB
     Dosage: 12 MG, QD
     Route: 041
     Dates: start: 20191007, end: 20191007
  3. ALEMTUZUMAB [Suspect]
     Active Substance: ALEMTUZUMAB
     Dosage: 12 MG, QD
     Route: 041
     Dates: start: 20191014, end: 20191014
  4. ALEMTUZUMAB [Suspect]
     Active Substance: ALEMTUZUMAB
     Dosage: 12 MG, QD
     Route: 041
     Dates: start: 20191011, end: 20191011
  5. FLUTICASONE. [Concomitant]
     Active Substance: FLUTICASONE
     Dosage: 50 UG
     Route: 045
  6. CYCLOBENZAPRINE. [Concomitant]
     Active Substance: CYCLOBENZAPRINE
     Dosage: 5 MG
  7. AFRIN [OXYMETAZOLINE] [Concomitant]
     Route: 045
  8. ZANAFLEX [Concomitant]
     Active Substance: TIZANIDINE HYDROCHLORIDE
     Dosage: UNK MG
  9. ANTIVERT [Concomitant]
     Active Substance: MECLIZINE HYDROCHLORIDE
     Dosage: UNK

REACTIONS (34)
  - Carpal tunnel syndrome [Unknown]
  - Obesity [Unknown]
  - Hypoaesthesia [Unknown]
  - Arthropathy [Unknown]
  - Vitamin D deficiency [Unknown]
  - Fatigue [Recovered/Resolved]
  - Rhinitis allergic [Unknown]
  - Hypersomnia [Unknown]
  - Synovial cyst [Unknown]
  - Sterilisation [Unknown]
  - Memory impairment [Unknown]
  - Sleep apnoea syndrome [Unknown]
  - Hyperglycaemia [Unknown]
  - Anxiety [Unknown]
  - Abdominal pain [Unknown]
  - Presyncope [Unknown]
  - Hirsutism [Unknown]
  - Polycystic ovaries [Unknown]
  - Depression [Unknown]
  - Arthralgia [Unknown]
  - Chronic sinusitis [Unknown]
  - Postoperative care [Unknown]
  - Decreased appetite [Recovered/Resolved]
  - Loss of consciousness [Recovered/Resolved]
  - Paraesthesia [Unknown]
  - Genital herpes [Unknown]
  - Dyspepsia [Recovered/Resolved]
  - Dizziness [Recovered/Resolved]
  - Skin papilloma [Unknown]
  - Gait disturbance [Unknown]
  - Herpes simplex [Unknown]
  - Optic neuritis [Unknown]
  - Gastrooesophageal reflux disease [Recovered/Resolved]
  - Peroneal nerve palsy [Unknown]

NARRATIVE: CASE EVENT DATE: 201810
